FAERS Safety Report 8574700-6 (Version None)
Quarter: 2012Q3

REPORT INFORMATION
  Report Type: 
  Country: None (occurrence: None)
  Receive Date: 20120807
  Receipt Date: 20120726
  Transmission Date: 20120928
  Serious: Yes (Hospitalization, Other)
  Sender: FDA-Public Use
  Company Number: PL-BIOGENIDEC-2012BI007910

PATIENT
  Sex: Female

DRUGS (2)
  1. TYSABRI [Suspect]
     Indication: MULTIPLE SCLEROSIS
     Route: 042
     Dates: start: 20090101, end: 20110617
  2. TYSABRI [Suspect]
     Dates: start: 20120305

REACTIONS (2)
  - PSYCHOTIC DISORDER [None]
  - MULTIPLE SCLEROSIS [None]
